FAERS Safety Report 6303580-4 (Version None)
Quarter: 2009Q3

REPORT INFORMATION
  Report Type: 
  Country: None (occurrence: None)
  Receive Date: 20090807
  Receipt Date: 20090807
  Transmission Date: 20100115
  Serious: Yes (Life-Threatening, Hospitalization, Disabling)
  Sender: FDA-Public Use
  Company Number: None

PATIENT
  Sex: Female
  Weight: 58.9676 kg

DRUGS (1)
  1. LANTUS [Suspect]
     Indication: DIABETES MELLITUS
     Dosage: 70 UNITS DAILY OTHER
     Route: 050
     Dates: start: 20000101, end: 20090806

REACTIONS (3)
  - HAEMODIALYSIS [None]
  - NEOPLASM MALIGNANT [None]
  - RENAL FAILURE CHRONIC [None]
